FAERS Safety Report 8419576-2 (Version None)
Quarter: 2012Q2

REPORT INFORMATION
  Report Type: 
  Country: None (occurrence: None)
  Receive Date: 20120607
  Receipt Date: 20120515
  Transmission Date: 20120825
  Serious: No
  Sender: FDA-Public Use
  Company Number: US-ASTRAZENECA-2012SE31122

PATIENT
  Sex: Female
  Weight: 58.1 kg

DRUGS (1)
  1. NEXIUM [Suspect]
     Indication: DYSPHAGIA
     Route: 048
     Dates: start: 20120514

REACTIONS (3)
  - DIZZINESS [None]
  - HYPERHIDROSIS [None]
  - OFF LABEL USE [None]
